FAERS Safety Report 6084320-3 (Version None)
Quarter: 2009Q1

REPORT INFORMATION
  Report Type: 
  Country: None (occurrence: None)
  Receive Date: 20090219
  Receipt Date: 20090211
  Transmission Date: 20090719
  Serious: Yes (Hospitalization, Other)
  Sender: FDA-Public Use
  Company Number: US-PFIZER INC-2009158683

PATIENT
  Sex: Male
  Weight: 69.841 kg

DRUGS (5)
  1. LIPITOR [Suspect]
     Indication: BLOOD CHOLESTEROL INCREASED
     Dosage: 10 MG, 1X/DAY
     Dates: end: 20081104
  2. DIPYRIDAMOLE [Concomitant]
  3. ACETYLSALICYLIC ACID [Concomitant]
  4. BACLOFEN [Concomitant]
  5. ALPRAZOLAM [Concomitant]

REACTIONS (23)
  - ABDOMINAL PAIN [None]
  - ACTIVITIES OF DAILY LIVING IMPAIRED [None]
  - AORTIC ANEURYSM [None]
  - BLOOD PRESSURE INCREASED [None]
  - BREATH SOUNDS ABNORMAL [None]
  - CEREBROVASCULAR ACCIDENT [None]
  - DERMATITIS [None]
  - DIARRHOEA [None]
  - DYSPNOEA [None]
  - ERECTILE DYSFUNCTION [None]
  - FALL [None]
  - HYPOTONIA [None]
  - INTERVERTEBRAL DISC DISORDER [None]
  - LOW DENSITY LIPOPROTEIN INCREASED [None]
  - MUSCLE DISORDER [None]
  - MUSCLE RIGIDITY [None]
  - MUSCLE TIGHTNESS [None]
  - MYALGIA [None]
  - OEDEMA PERIPHERAL [None]
  - PAIN [None]
  - PAIN IN EXTREMITY [None]
  - THYROXINE DECREASED [None]
  - WEIGHT DECREASED [None]
